FAERS Safety Report 8213404-6 (Version None)
Quarter: 2012Q1

REPORT INFORMATION
  Report Type: 
  Country: None (occurrence: None)
  Receive Date: 20120315
  Receipt Date: 20120312
  Transmission Date: 20120608
  Serious: Yes (Death, Other)
  Sender: FDA-Public Use
  Company Number: PHHY2011GB17703

PATIENT
  Age: 23 Year
  Sex: Male
  Weight: 106 kg

DRUGS (21)
  1. TEMAZEPAM [Suspect]
     Dosage: 20 MG, UNK
     Route: 065
     Dates: start: 20051230
  2. ACETAMINOPHEN AND HYDROCODONE BITARTRATE [Concomitant]
     Indication: ANALGESIC THERAPY
     Dosage: UNK
     Dates: start: 20051227
  3. DURAGESIC-100 [Interacting]
     Indication: CROHN'S DISEASE
     Dosage: 100 UG/HR, QD
     Route: 062
     Dates: start: 20051229, end: 20051230
  4. STEROIDS NOS [Concomitant]
  5. MESALAMINE [Concomitant]
  6. DURAGESIC-100 [Interacting]
     Indication: ANALGESIC THERAPY
     Dosage: 50 UG/KG, UNK
     Route: 062
     Dates: start: 20051225
  7. DURAGESIC-100 [Interacting]
     Indication: HEADACHE
     Dosage: 100 UG/HR, BID
     Route: 062
     Dates: start: 20051230
  8. CHLORPHENIRAMINE MALEATE [Interacting]
     Indication: ILL-DEFINED DISORDER
     Dosage: 0.5 DF, DAILY
     Route: 065
     Dates: start: 20051230
  9. CYCLIZINE [Interacting]
     Indication: ILL-DEFINED DISORDER
     Dosage: 50 MG, TID
     Route: 065
     Dates: start: 20051223
  10. CODEINE [Concomitant]
  11. HYDROCODONE BITARTRATE [Concomitant]
  12. TEMAZEPAM [Concomitant]
  13. IBUPROFEN [Concomitant]
     Dosage: 400 MG, UNK
  14. TRAMADOL HCL [Concomitant]
     Route: 030
  15. PREDFOAM [Concomitant]
     Dosage: 20 MG, UNK
     Dates: start: 20051223
  16. DICYCLOMINE HCL [Concomitant]
  17. MORPHINE [Concomitant]
     Dosage: 10 MG, TID
  18. DIAZEPAM [Concomitant]
     Dosage: HALF TO 1 TABLET 3 TIMES DAILY
     Dates: start: 20051028
  19. ORAMORPH SR [Concomitant]
     Dosage: 5 ML, QID
     Route: 065
     Dates: start: 20051223
  20. ZOPICLONE [Concomitant]
  21. ACETAMINOPHEN [Concomitant]
     Indication: PAIN

REACTIONS (23)
  - MUSCULOSKELETAL STIFFNESS [None]
  - ANXIETY [None]
  - DIZZINESS [None]
  - RESPIRATORY DEPRESSION [None]
  - PHOTOPHOBIA [None]
  - DYSPNOEA [None]
  - SNORING [None]
  - TOXICITY TO VARIOUS AGENTS [None]
  - OVERDOSE [None]
  - LOSS OF CONSCIOUSNESS [None]
  - HYPERSENSITIVITY [None]
  - VISION BLURRED [None]
  - MALAISE [None]
  - DYSARTHRIA [None]
  - DRUG INTERACTION [None]
  - DRY MOUTH [None]
  - AMNESIA [None]
  - PRURITUS [None]
  - PNEUMONIA [None]
  - OXYGEN SATURATION DECREASED [None]
  - CHILLS [None]
  - DEPRESSED LEVEL OF CONSCIOUSNESS [None]
  - HEADACHE [None]
